FAERS Safety Report 9096059 (Version 1)
Quarter: 2013Q1

REPORT INFORMATION
  Report Type: Spontaneous
  Country: US (occurrence: US)
  Receive Date: 20130207
  Receipt Date: 20130207
  Transmission Date: 20140127
  Serious: No
  Sender: FDA-Public Use
  Company Number: US-TEVA-384272USA

PATIENT
  Age: 43 Year
  Sex: Female

DRUGS (4)
  1. NUVIGIL [Suspect]
  2. SEROQUEL XR [Concomitant]
  3. WELLBUTRIN XL [Concomitant]
  4. XANAX [Concomitant]
     Dosage: BID

REACTIONS (1)
  - Hallucination [Recovered/Resolved]
